FAERS Safety Report 9994774 (Version 1)
Quarter: 2014Q1

REPORT INFORMATION
  Report Type: Spontaneous
  Country: US (occurrence: None)
  Receive Date: 20140307
  Receipt Date: 20140307
  Transmission Date: 20141002
  Serious: Yes (Disabling)
  Sender: FDA-Public Use
  Company Number: None

PATIENT
  Age: 69 Year
  Sex: Female
  Weight: 68.04 kg

DRUGS (18)
  1. TOVIAZ [Suspect]
     Indication: HYPERTONIC BLADDER
     Dosage: 4 MG 1 PILL 1 A DAY IN MORNING BY MOUTH
     Route: 048
     Dates: start: 20130606, end: 20140109
  2. INDAPAMIDE [Concomitant]
  3. SIMVASTATIN [Concomitant]
  4. ESTRACE CREAM [Concomitant]
  5. VOLATAREN GEL [Concomitant]
  6. ALLEGRA [Concomitant]
  7. MUCINEX [Concomitant]
  8. OSTEO-BIFLEX [Concomitant]
  9. ASPIRIN THERAPY [Concomitant]
  10. METAMUCILL [Concomitant]
  11. VITAMIN C [Concomitant]
  12. VITAMIN E [Concomitant]
  13. VITAMIN D3 [Concomitant]
  14. SUPER B [Concomitant]
  15. CALCIUM [Concomitant]
  16. MAGNESIUM [Concomitant]
  17. ZINC [Concomitant]
  18. FISH OIL [Concomitant]

REACTIONS (6)
  - Synovial cyst [None]
  - Arthralgia [None]
  - Joint swelling [None]
  - Local swelling [None]
  - Joint stiffness [None]
  - Disease recurrence [None]
